FAERS Safety Report 9618398 (Version 1)
Quarter: 2013Q4

REPORT INFORMATION
  Report Type: Report from Study
  Country: BR (occurrence: BR)
  Receive Date: 20131014
  Receipt Date: 20131014
  Transmission Date: 20140711
  Serious: Yes (Other)
  Sender: FDA-Public Use
  Company Number: BR-ROCHE-1287823

PATIENT
  Age: 22 Year
  Sex: Male

DRUGS (2)
  1. DIAZEPAM [Suspect]
     Indication: SCHIZOPHRENIA
     Route: 065
  2. AKINETON [Concomitant]
     Route: 065

REACTIONS (2)
  - Disease progression [Unknown]
  - Schizophrenia [Unknown]
